FAERS Safety Report 7661282-6 (Version None)
Quarter: 2011Q3

REPORT INFORMATION
  Report Type: 
  Country: None (occurrence: None)
  Receive Date: 20110805
  Receipt Date: 20101001
  Transmission Date: 20111222
  Serious: No
  Sender: FDA-Public Use
  Company Number: US-ABBOTT-10P-163-0675896-00

PATIENT
  Sex: Male
  Weight: 63.56 kg

DRUGS (8)
  1. NIASPAN [Suspect]
     Indication: BLOOD CHOLESTEROL INCREASED
     Dates: start: 20100901, end: 20100901
  2. LOSARTAN POTASSIUM [Concomitant]
     Indication: HYPERTENSION
     Dosage: 100/12.5 MG
  3. METFORMIN HCL [Concomitant]
     Indication: DIABETES MELLITUS
  4. METOPROLOL TARTRATE [Concomitant]
     Indication: HYPERTENSION
  5. NIASPAN [Suspect]
     Indication: BLOOD CHOLESTEROL INCREASED
     Dates: start: 20100601, end: 20100901
  6. NIASPAN [Suspect]
     Dates: start: 20100901
  7. ASPIRIN [Concomitant]
     Indication: PRODUCT USED FOR UNKNOWN INDICATION
  8. SIMASTATIN [Concomitant]
     Indication: BLOOD CHOLESTEROL INCREASED

REACTIONS (1)
  - PRURITUS [None]
